FAERS Safety Report 7607790-5 (Version None)
Quarter: 2011Q3

REPORT INFORMATION
  Report Type: 
  Country: None (occurrence: None)
  Receive Date: 20110714
  Receipt Date: 20110708
  Transmission Date: 20111222
  Serious: Yes (Death, Other)
  Sender: FDA-Public Use
  Company Number: US-BRISTOL-MYERS SQUIBB COMPANY-15879000

PATIENT
  Age: 45 Year
  Sex: Male
  Weight: 64 kg

DRUGS (7)
  1. TAXOL [Suspect]
     Indication: SMALL CELL LUNG CANCER STAGE UNSPECIFIED
     Dosage: 1 DF: 200/M2 400 MG/250ML NS OVER 3 HRS
     Dates: start: 20110523
  2. PEPCID [Concomitant]
     Route: 042
  3. BENADRYL [Concomitant]
     Route: 042
  4. CARBOPLATIN [Suspect]
     Indication: SMALL CELL LUNG CANCER STAGE UNSPECIFIED
     Dosage: 1 DF: 5 AUC 650MG/500ML OVER 1 HR
     Dates: start: 20110523
  5. AVASTIN [Suspect]
     Indication: SMALL CELL LUNG CANCER STAGE UNSPECIFIED
     Dosage: 880MG/100ML NS OVER 90 MIN/60 MIN/30 MIN
  6. DEXAMETHASONE [Concomitant]
     Route: 042
  7. ZOFRAN [Concomitant]
     Route: 042

REACTIONS (9)
  - WEIGHT DECREASED [None]
  - ASTHENIA [None]
  - IMMUNOSUPPRESSION [None]
  - CHROMATURIA [None]
  - BLOOD CALCIUM INCREASED [None]
  - FUNGAL INFECTION [None]
  - DYSPHAGIA [None]
  - DEATH [None]
  - ALOPECIA [None]
